FAERS Safety Report 12619920 (Version 2)
Quarter: 2016Q3

REPORT INFORMATION
  Report Type: Report from Study
  Country: US (occurrence: US)
  Receive Date: 20160803
  Receipt Date: 20160826
  Transmission Date: 20161109
  Serious: Yes (Other)
  Sender: FDA-Public Use
  Company Number: US-SAOL THERAPEUTICS-2016SAO00302

PATIENT
  Age: 44 Year
  Sex: Female

DRUGS (16)
  1. MORPHINE [Suspect]
     Active Substance: MORPHINE
     Dosage: 5.948 MG, \DAY
     Route: 037
     Dates: start: 20150924
  2. MORPHINE [Suspect]
     Active Substance: MORPHINE
     Dosage: 5.997 MG, \DAY
     Route: 037
     Dates: start: 20160120
  3. BUPIVACAINE. [Suspect]
     Active Substance: BUPIVACAINE
     Dosage: 8.404 MG, \DAY
     Route: 037
     Dates: start: 20160414
  4. CLONIDINE. [Suspect]
     Active Substance: CLONIDINE
     Dosage: 39.98 ?G, \DAY
     Route: 037
     Dates: start: 20160120, end: 20150924
  5. COMPOUNDED BACLOFEN [Suspect]
     Active Substance: BACLOFEN
     Indication: LUMBAR RADICULOPATHY
     Dosage: 297.39 ?G, \DAY
     Dates: start: 20150924
  6. COMPOUNDED BACLOFEN [Suspect]
     Active Substance: BACLOFEN
     Indication: PAIN
  7. MORPHINE [Suspect]
     Active Substance: MORPHINE
     Dosage: 6.303 MG, \DAY
     Dates: start: 20160218
  8. COMPOUNDED BACLOFEN [Suspect]
     Active Substance: BACLOFEN
     Indication: PAIN
     Dosage: 299.83 ?G, \DAY
     Dates: start: 20160120
  9. COMPOUNDED BACLOFEN [Suspect]
     Active Substance: BACLOFEN
     Indication: LUMBAR RADICULOPATHY
     Dosage: 420.2 ?G, \DAY
     Route: 037
     Dates: start: 20160414
  10. CLONIDINE. [Suspect]
     Active Substance: CLONIDINE
     Dosage: 42.02 ?G, \DAY
     Route: 037
     Dates: start: 20160218
  11. BUPIVACAINE. [Suspect]
     Active Substance: BUPIVACAINE
     Dosage: 7.930 MG, \DAY
     Route: 037
     Dates: start: 20150924
  12. BUPIVACAINE. [Suspect]
     Active Substance: BUPIVACAINE
     Dosage: 8.404 ?G, \DAY
     Dates: start: 20160218
  13. CLONIDINE. [Suspect]
     Active Substance: CLONIDINE
     Dosage: 42.02 ?G, \DAY
     Dates: start: 20160414
  14. COMPOUNDED BACLOFEN [Suspect]
     Active Substance: BACLOFEN
     Dosage: 315.14 ?G, \DAY
     Route: 037
     Dates: start: 20160218
  15. CLONIDINE. [Suspect]
     Active Substance: CLONIDINE
     Dosage: 39.65 ?G, \DAY
     Route: 037
     Dates: start: 20150924
  16. BUPIVACAINE. [Suspect]
     Active Substance: BUPIVACAINE
     Dosage: 7.995 ?G, \DAY
     Dates: start: 20160120

REACTIONS (9)
  - Medical device site erythema [Recovered/Resolved]
  - Impaired healing [Recovered/Resolved]
  - Hypoaesthesia [Recovered/Resolved]
  - Device dislocation [Recovered/Resolved]
  - Drug withdrawal syndrome [Recovered/Resolved]
  - Medical device site discharge [Recovered/Resolved]
  - Medical device site infection [Recovered/Resolved]
  - Medical device site vesicles [Recovered/Resolved]
  - Medical device site pain [Recovered/Resolved]

NARRATIVE: CASE EVENT DATE: 2016
